FAERS Safety Report 18376602 (Version 9)
Quarter: 2022Q1

REPORT INFORMATION
  Report Type: Report from Study
  Country: CA (occurrence: CA)
  Receive Date: 20201013
  Receipt Date: 20220118
  Transmission Date: 20220424
  Serious: Yes (Death, Other)
  Sender: FDA-Public Use
  Company Number: CA-JNJFOC-20201003146

PATIENT
  Sex: Female
  Weight: 76.726 kg

DRUGS (7)
  1. INFLIXIMAB [Suspect]
     Active Substance: INFLIXIMAB
     Indication: Psoriasis
     Route: 042
     Dates: start: 2009, end: 201601
  2. STELARA [Suspect]
     Active Substance: USTEKINUMAB
     Indication: Psoriasis
     Route: 058
     Dates: start: 201606, end: 201706
  3. GUSELKUMAB [Concomitant]
     Active Substance: GUSELKUMAB
     Route: 065
     Dates: start: 202006
  4. ETANERCEPT [Concomitant]
     Active Substance: ETANERCEPT
     Route: 065
     Dates: start: 200905, end: 200912
  5. SECUKINUMAB [Concomitant]
     Active Substance: SECUKINUMAB
     Route: 065
     Dates: start: 201706, end: 201806
  6. IXEKIZUMAB [Concomitant]
     Active Substance: IXEKIZUMAB
     Route: 065
     Dates: start: 201808, end: 202005
  7. PREDNISONE [Concomitant]
     Active Substance: PREDNISONE
     Indication: Psoriasis
     Route: 065

REACTIONS (1)
  - Lung adenocarcinoma [Fatal]

NARRATIVE: CASE EVENT DATE: 20200901
